FAERS Safety Report 8604466-2 (Version None)
Quarter: 2012Q3

REPORT INFORMATION
  Report Type: 
  Country: None (occurrence: None)
  Receive Date: 20120820
  Receipt Date: 20120809
  Transmission Date: 20120928
  Serious: Yes (Death, Life-Threatening, Hospitalization)
  Sender: FDA-Public Use
  Company Number: DE-MPIJNJ-2012-05276

PATIENT

DRUGS (5)
  1. ZOMETA [Concomitant]
     Dosage: UNK
     Dates: start: 20080917
  2. CYCLOPHOSPHAMIDE [Suspect]
     Indication: MULTIPLE MYELOMA
     Dosage: UNK
     Dates: start: 20120326, end: 20120705
  3. VELCADE [Suspect]
     Indication: MULTIPLE MYELOMA
     Dosage: UNK
     Route: 065
     Dates: start: 20120326, end: 20120705
  4. DEXAMETHASONE [Suspect]
     Indication: MULTIPLE MYELOMA
     Dosage: UNK
     Dates: start: 20120326, end: 20120705
  5. AMOXICILLIN [Concomitant]

REACTIONS (1)
  - INFECTION [None]
